FAERS Safety Report 19520030 (Version 5)
Quarter: 2021Q4

REPORT INFORMATION
  Report Type: Report from Study
  Country: KR (occurrence: None)
  Receive Date: 20210712
  Receipt Date: 20211206
  Transmission Date: 20220303
  Serious: Yes (Hospitalization)
  Sender: FDA-Public Use
  Company Number: KR-ROCHE-2855330

PATIENT
  Age: 54 Year
  Sex: Male
  Weight: 55.2 kg

DRUGS (26)
  1. ATEZOLIZUMAB [Suspect]
     Active Substance: ATEZOLIZUMAB
     Indication: Oesophageal carcinoma
     Route: 041
     Dates: start: 20210426
  2. CISPLATIN [Suspect]
     Active Substance: CISPLATIN
     Indication: Oesophageal carcinoma
     Dosage: DATE OF MOST RECENT DOSE 132 MG OF STUDY DRUG PRIOR TO SERIOUS ADVERSE EVENT (SAE): 07/JUN/2021
     Route: 042
     Dates: start: 20210426
  3. FLUOROURACIL [Suspect]
     Active Substance: FLUOROURACIL
     Indication: Oesophageal carcinoma
     Dosage: DATE OF MOST RECENT DOSE 6600 MG OF STUDY DRUG PRIOR TO SAE:11/JUN/2021
     Route: 042
     Dates: start: 20210426
  4. TRESTAN [Concomitant]
     Indication: Decreased appetite
     Dosage: 1 CAPSULE
     Route: 048
     Dates: start: 20210429, end: 20210517
  5. MAGNESIN (SOUTH KOREA) [Concomitant]
     Indication: Prophylaxis
     Route: 042
     Dates: start: 20210621, end: 20210808
  6. METOCLOPRAMIDE HYDROCHLORIDE [Concomitant]
     Active Substance: METOCLOPRAMIDE HYDROCHLORIDE
     Indication: Nausea
     Route: 042
     Dates: start: 20210429, end: 20210810
  7. AKYNZEO [Concomitant]
     Active Substance: NETUPITANT\PALONOSETRON HYDROCHLORIDE
     Indication: Premedication
     Dosage: 300/0.5MG
     Route: 048
     Dates: start: 20210426, end: 20210809
  8. AKYNZEO [Concomitant]
     Active Substance: NETUPITANT\PALONOSETRON HYDROCHLORIDE
     Dosage: 300/0.5MG
     Route: 048
     Dates: start: 20210517, end: 20210517
  9. AKYNZEO [Concomitant]
     Active Substance: NETUPITANT\PALONOSETRON HYDROCHLORIDE
     Dosage: 300/0.5MG
     Route: 048
     Dates: start: 20210607, end: 20210607
  10. AMINO ACIDS\DEXTROSE\ELECTROLYTES NOS\SOYBEAN OIL [Concomitant]
     Active Substance: AMINO ACIDS\DEXTROSE\ELECTROLYTES NOS\SOYBEAN OIL
     Indication: Decreased appetite
     Dosage: 1500 1477ML(CENTRAL)
     Route: 042
     Dates: start: 20210621, end: 20210625
  11. AMINO ACIDS\DEXTROSE\ELECTROLYTES NOS\SOYBEAN OIL [Concomitant]
     Active Substance: AMINO ACIDS\DEXTROSE\ELECTROLYTES NOS\SOYBEAN OIL
     Route: 042
     Dates: start: 20210522, end: 20210620
  12. HEPARIN [Concomitant]
     Active Substance: HEPARIN SODIUM
     Dates: start: 20210409, end: 20211002
  13. HARTMANN GLUCOSE [Concomitant]
     Indication: Decreased appetite
     Route: 042
     Dates: start: 20210521, end: 20210626
  14. FREEFOL-MCT [Concomitant]
     Indication: Prophylaxis
     Route: 042
     Dates: start: 20210521, end: 20210521
  15. FREEFOL-MCT [Concomitant]
     Route: 042
     Dates: start: 20210524, end: 20210524
  16. FREEFOL-MCT [Concomitant]
     Route: 042
     Dates: start: 20210621, end: 20210621
  17. FREEFOL-MCT [Concomitant]
     Route: 042
     Dates: start: 20210623, end: 20210623
  18. TIROPRAMIDE [Concomitant]
     Active Substance: TIROPRAMIDE
     Route: 048
     Dates: start: 20210522, end: 20210522
  19. ACETAMINOPHEN [Concomitant]
     Active Substance: ACETAMINOPHEN
     Indication: Dental caries
     Route: 048
     Dates: start: 20210607, end: 20210607
  20. ACETAMINOPHEN [Concomitant]
     Active Substance: ACETAMINOPHEN
     Indication: Toothache
  21. ACTIFED (SOUTH KOREA) [Concomitant]
     Route: 048
     Dates: start: 20210608, end: 20210611
  22. FURTMAN [Concomitant]
     Indication: Decreased appetite
     Route: 042
     Dates: start: 20210619, end: 20210625
  23. HEXAMEDINE [Concomitant]
     Dates: start: 20210607, end: 20210612
  24. TRAMADOL HYDROCHLORIDE [Concomitant]
     Active Substance: TRAMADOL HYDROCHLORIDE
     Indication: Headache
     Dosage: TRIDOL SOLUBLE
     Route: 048
     Dates: start: 20210610, end: 20210610
  25. BROPIUM [Concomitant]
     Route: 042
     Dates: start: 20210623, end: 20210623
  26. MORPHINE SULFATE [Concomitant]
     Active Substance: MORPHINE SULFATE
     Route: 042
     Dates: start: 20210623, end: 20210623

REACTIONS (1)
  - Dysphagia [Recovered/Resolved]

NARRATIVE: CASE EVENT DATE: 20210613
